FAERS Safety Report 9852179 (Version 1)
Quarter: 2013Q4

REPORT INFORMATION
  Report Type: Spontaneous
  Country: US (occurrence: None)
  Receive Date: 20131226
  Receipt Date: 20131226
  Transmission Date: 20140711
  Serious: No
  Sender: FDA-Public Use
  Company Number: PHEH2013US002126

PATIENT
  Sex: Female
  Weight: 79.4 kg

DRUGS (21)
  1. GILENYA (FINGOLIMOD) CAPSULE [Suspect]
     Indication: MULTIPLE SCLEROSIS
     Route: 048
     Dates: start: 20130116
  2. COREG CR (CARVEDILOL) [Concomitant]
  3. AMBIEN (ZOLPIDEM TARTRATE) [Concomitant]
  4. LIPITOR (ATORVASTATIN  CALCIUM) [Concomitant]
  5. LISINOPRIL (LISINOPRIL) [Concomitant]
  6. CITALOPRAM (CITALOPRAM) [Concomitant]
  7. BACLOFEN (BACLOFEN) [Concomitant]
  8. OMEGA 3 FISH OIL (FISH OIL) [Concomitant]
  9. CO Q 10 (UBIDECARENONE) [Concomitant]
  10. HYDROCHLOROTHIAZIDE (HYDROCHLOROTHIAZIDE) [Concomitant]
  11. SIMVASTATIN (SIMVASTATIN) [Concomitant]
  12. SUMATRIPTAN SUCCINATE (SUMATRIPTAN SUCCINATE) [Concomitant]
  13. ACTONEL (RISEDRONATE SODIUM) [Concomitant]
  14. CARAVEDILOL (CARVEDILOL) [Concomitant]
  15. AMITRIPTYLINE HCL (AMITRIPTYLINE HYDROCHLORIDE) [Concomitant]
  16. AP CALCIUM+VIT D (CALCIUM, CALECALCIFEROL) [Concomitant]
  17. COLACE [Concomitant]
  18. SUPER B COMPLEX (ASCORBIC ACID, BIOTIN, CALCIUM PANTOTHENATE, CHOLINE BITARTRATE, CYANOCOBALAMIN, FOLIC ACID, INOSITOL, NICOTINIAMIDE, PYRIDOXINE HYDROCHLORIDE, RIBOFLAVIN,  THIAMINE MONONITRATE) [Concomitant]
  19. MULTI-VIT (VITAMINS NOS) [Concomitant]
  20. SOLUMEDROL (METHYLPREDNISOLONE SODIUM SUCCINATE) [Concomitant]
  21. RITALIN (METHYLPHENIDATE HYDROCHLORIDE) [Concomitant]

REACTIONS (1)
  - Paraesthesia [None]
